FAERS Safety Report 7712026-0 (Version None)
Quarter: 2011Q3

REPORT INFORMATION
  Report Type: 
  Country: None (occurrence: None)
  Receive Date: 20110826
  Receipt Date: 20110812
  Transmission Date: 20111222
  Serious: Yes (Death, Other)
  Sender: FDA-Public Use
  Company Number: US-TYCO HEALTHCARE/MALLINCKRODT-T201101578

PATIENT
  Age: 18 Year
  Sex: Female

DRUGS (2)
  1. MORPHINE [Suspect]
     Indication: PAIN
  2. DILAUDID [Suspect]
     Indication: PAIN
     Dosage: CONSTANT FLOW OF DRUG

REACTIONS (3)
  - UNRESPONSIVE TO STIMULI [None]
  - INCORRECT DRUG ADMINISTRATION RATE [None]
  - VIRAL INFECTION [None]
